FAERS Safety Report 15139639 (Version 2)
Quarter: 2018Q3

REPORT INFORMATION
  Report Type: Report from Study
  Country: US (occurrence: US)
  Receive Date: 20180713
  Receipt Date: 20180724
  Transmission Date: 20181010
  Serious: No
  Sender: FDA-Public Use
  Company Number: US-ROCHE-2060370

PATIENT
  Sex: Female

DRUGS (8)
  1. OCREVUS [Suspect]
     Active Substance: OCRELIZUMAB
     Indication: PRIMARY PROGRESSIVE MULTIPLE SCLEROSIS
     Route: 042
     Dates: start: 20180117
  2. BENADRYL [Concomitant]
     Active Substance: DIPHENHYDRAMINE HYDROCHLORIDE
     Route: 048
  3. NORMAL SALINE [Concomitant]
     Active Substance: SODIUM CHLORIDE
     Route: 042
  4. ACETAMINOPHEN. [Concomitant]
     Active Substance: ACETAMINOPHEN
     Route: 065
  5. OCREVUS [Suspect]
     Active Substance: OCRELIZUMAB
     Route: 042
     Dates: start: 20180719
  6. MELATONIN [Concomitant]
     Active Substance: MELATONIN
     Dosage: BEDTIME
     Route: 048
  7. OCREVUS [Suspect]
     Active Substance: OCRELIZUMAB
     Dosage: NEXT EXPECTED DOSE: 18/JUL/2018?FOLLOWED BY 600 MG EVERY 6 MONTHS.
     Route: 042
     Dates: start: 20180131
  8. SOLU?MEDROL [Concomitant]
     Active Substance: METHYLPREDNISOLONE SODIUM SUCCINATE
     Route: 042

REACTIONS (23)
  - Muscular weakness [Unknown]
  - Coordination abnormal [Unknown]
  - Dizziness [Unknown]
  - Neuropathy peripheral [Unknown]
  - Feeling hot [Unknown]
  - Hypertension [Unknown]
  - JC polyomavirus test positive [Unknown]
  - Headache [Unknown]
  - Suffocation feeling [Unknown]
  - Dyspnoea [Unknown]
  - Mobility decreased [Unknown]
  - Visual impairment [Unknown]
  - Insomnia [Unknown]
  - Rash macular [Unknown]
  - Nausea [Unknown]
  - Rash [Unknown]
  - Hypoaesthesia [Unknown]
  - Constipation [Unknown]
  - Nervousness [Unknown]
  - Pyrexia [Unknown]
  - Tremor [Unknown]
  - Gait disturbance [Unknown]
  - Depression [Unknown]
